FAERS Safety Report 19889713 (Version 2)
Quarter: 2021Q4

REPORT INFORMATION
  Report Type: Spontaneous
  Country: US (occurrence: US)
  Receive Date: 20210928
  Receipt Date: 20211207
  Transmission Date: 20220303
  Serious: Yes (Hospitalization)
  Sender: FDA-Public Use
  Company Number: US-CELGENE-USA-20210903562

PATIENT
  Age: 60 Year
  Sex: Female

DRUGS (3)
  1. THALOMID [Suspect]
     Active Substance: THALIDOMIDE
     Indication: Arteriovenous malformation
     Dosage: 100 MILLIGRAM
     Route: 048
     Dates: start: 20210706, end: 20210913
  2. THALOMID [Suspect]
     Active Substance: THALIDOMIDE
     Indication: Refractory cytopenia with unilineage dysplasia
  3. THALOMID [Suspect]
     Active Substance: THALIDOMIDE
     Indication: Off label use

REACTIONS (1)
  - Liver disorder [Unknown]

NARRATIVE: CASE EVENT DATE: 20210913
